FAERS Safety Report 10608785 (Version 1)
Quarter: 2014Q4

REPORT INFORMATION
  Report Type: Spontaneous
  Country: JP (occurrence: JP)
  Receive Date: 20141125
  Receipt Date: 20141125
  Transmission Date: 20150529
  Serious: Yes (Other)
  Sender: FDA-Public Use
  Company Number: JP-GLAXOSMITHKLINE-JP2014JPN001705

PATIENT
  Age: 52 Year
  Sex: Female

DRUGS (1)
  1. IMIGRAN [Suspect]
     Active Substance: SUMATRIPTAN SUCCINATE
     Indication: MIGRAINE
     Dosage: UNK

REACTIONS (7)
  - Chest discomfort [Unknown]
  - Mediastinal disorder [Unknown]
  - Blood pressure increased [Unknown]
  - Drug effect incomplete [Unknown]
  - Electrocardiogram ST segment depression [Unknown]
  - Laryngeal pain [Unknown]
  - Migraine [Unknown]
